FAERS Safety Report 21139601 (Version 2)
Quarter: 2022Q3

REPORT INFORMATION
  Report Type: Report from Study
  Country: US (occurrence: US)
  Receive Date: 20220727
  Receipt Date: 20220818
  Transmission Date: 20221027
  Serious: No
  Sender: FDA-Public Use
  Company Number: US-AMGEN-USASP2022124399

PATIENT
  Age: 70 Year
  Sex: Female

DRUGS (1)
  1. NEULASTA [Suspect]
     Active Substance: PEGFILGRASTIM
     Indication: Chemotherapy
     Dosage: WITH EVERY CHEMOTHERAPY TREATMEN
     Route: 065
     Dates: start: 20220324, end: 20220527

REACTIONS (2)
  - Device use error [Unknown]
  - Application site pain [Unknown]

NARRATIVE: CASE EVENT DATE: 20220101
